FAERS Safety Report 10252687 (Version 1)
Quarter: 2014Q2

REPORT INFORMATION
  Report Type: Spontaneous
  Country: US (occurrence: US)
  Receive Date: 20140623
  Receipt Date: 20140623
  Transmission Date: 20141212
  Serious: No
  Sender: FDA-Public Use
  Company Number: US-JNJFOC-20140606135

PATIENT
  Sex: Female
  Weight: 120.2 kg

DRUGS (5)
  1. DURAGESIC [Suspect]
     Indication: COMPLEX REGIONAL PAIN SYNDROME
     Route: 062
     Dates: start: 201311
  2. DURAGESIC [Suspect]
     Indication: COMPLEX REGIONAL PAIN SYNDROME
     Route: 062
     Dates: start: 2009
  3. AVINZA [Suspect]
     Indication: COMPLEX REGIONAL PAIN SYNDROME
     Route: 048
     Dates: end: 201310
  4. SYNTHROID [Concomitant]
     Indication: THYROID DISORDER
     Route: 048
  5. CELEXA [Concomitant]
     Indication: DEPRESSION
     Route: 048

REACTIONS (12)
  - Drug effect increased [Unknown]
  - Sedation [Recovered/Resolved]
  - Fatigue [Recovered/Resolved]
  - Dysarthria [Recovered/Resolved]
  - Vomiting [Recovered/Resolved]
  - Incorrect drug administration duration [Not Recovered/Not Resolved]
  - Drug withdrawal syndrome [Recovered/Resolved]
  - Nausea [Recovered/Resolved]
  - Vomiting [Recovered/Resolved]
  - Pain [Not Recovered/Not Resolved]
  - Product adhesion issue [Unknown]
  - Intercepted medication error [Unknown]
